FAERS Safety Report 8920825 (Version 1)
Quarter: 2012Q4

REPORT INFORMATION
  Report Type: 
  Country: ES (occurrence: ES)
  Receive Date: 20121121
  Receipt Date: 20121121
  Transmission Date: 20130627
  Serious: Yes (Hospitalization)
  Sender: FDA-Public Use
  Company Number: ES-ASTRAZENECA-2012SE86104

PATIENT
  Age: 75 Year
  Sex: Male

DRUGS (1)
  1. VIMOVO [Suspect]
     Indication: OSTEOARTHRITIS
     Dosage: Unknown dose, every eight hours
     Route: 048
     Dates: end: 20120521

REACTIONS (2)
  - Renal failure acute [Recovered/Resolved]
  - Cardiac failure [Recovered/Resolved]
